FAERS Safety Report 25492234 (Version 2)
Quarter: 2025Q3

REPORT INFORMATION
  Report Type: Report from Study
  Country: SA (occurrence: SA)
  Receive Date: 20250630
  Receipt Date: 20250708
  Transmission Date: 20251020
  Serious: Yes (Hospitalization)
  Sender: CHIESI
  Company Number: SA-CHIESI-2025CHF04310

PATIENT
  Age: 33 Year
  Sex: Female

DRUGS (3)
  1. LOMITAPIDE [Suspect]
     Active Substance: LOMITAPIDE
     Indication: Type IIa hyperlipidaemia
     Route: 048
     Dates: start: 20250306
  2. EZETIMIBE [Concomitant]
     Active Substance: EZETIMIBE
     Indication: Type IIa hyperlipidaemia
     Dosage: 10 MILLIGRAM, QD
     Route: 048
     Dates: start: 20240531
  3. ROSUVASTATIN [Concomitant]
     Active Substance: ROSUVASTATIN
     Indication: Type IIa hyperlipidaemia
     Dosage: 20 MILLIGRAM, QD
     Route: 048
     Dates: start: 20161001

REACTIONS (3)
  - Cardiac disorder [Recovered/Resolved]
  - Decreased appetite [Recovering/Resolving]
  - Product dose omission issue [Recovered/Resolved]

NARRATIVE: CASE EVENT DATE: 20250606
